FAERS Safety Report 7073806-0 (Version None)
Quarter: 2010Q4

REPORT INFORMATION
  Report Type: 
  Country: None (occurrence: None)
  Receive Date: 20101029
  Receipt Date: 20100817
  Transmission Date: 20110411
  Serious: No
  Sender: FDA-Public Use
  Company Number: A0876363A

PATIENT
  Age: 66 Year
  Sex: Female

DRUGS (8)
  1. ADVAIR DISKUS 100/50 [Suspect]
     Indication: ASTHMA
     Dosage: 1PUFF TWICE PER DAY
     Route: 055
     Dates: start: 20100701
  2. PREDNISONE [Concomitant]
  3. UNIVASC [Concomitant]
  4. CRESTOR [Concomitant]
  5. PREVACID [Concomitant]
  6. CALTRATE [Concomitant]
  7. LORA TAB [Concomitant]
  8. OXYGEN [Concomitant]

REACTIONS (4)
  - DYSPHONIA [None]
  - GINGIVAL PAIN [None]
  - GLOSSODYNIA [None]
  - TONGUE DISORDER [None]
